FAERS Safety Report 24602062 (Version 1)
Quarter: 2024Q4

REPORT INFORMATION
  Report Type: Spontaneous
  Country: CZ (occurrence: CZ)
  Receive Date: 20241111
  Receipt Date: 20241111
  Transmission Date: 20250115
  Serious: Yes (Hospitalization, Other)
  Sender: SANDOZ
  Company Number: CZ-AMGEN-CZESP2024211311

PATIENT
  Age: 51 Year
  Sex: Female

DRUGS (7)
  1. ADALIMUMAB [Suspect]
     Active Substance: ADALIMUMAB
     Indication: Uveitis
     Dosage: UNK
     Route: 065
  2. PREDNISONE [Concomitant]
     Active Substance: PREDNISONE
     Dosage: 20 MILLIGRAM WITH GRADUAL TAPERING
     Route: 065
  3. PREDNISONE [Concomitant]
     Active Substance: PREDNISONE
     Indication: Ankylosing spondylitis
     Dosage: 25 MILLIGRAM, FOLLOWED BY GRADUAL TAPERING
     Route: 065
  4. PREDNISONE [Concomitant]
     Active Substance: PREDNISONE
     Dosage: 5 MILLIGRAM
     Route: 065
  5. SULFASALAZINE [Concomitant]
     Active Substance: SULFASALAZINE
     Dosage: 2 GRAM, QD
     Route: 065
  6. SULFASALAZINE [Concomitant]
     Active Substance: SULFASALAZINE
     Indication: Product used for unknown indication
     Dosage: 3 GRAM, QD
     Route: 065
  7. SULFASALAZINE [Concomitant]
     Active Substance: SULFASALAZINE
     Dosage: 3 GRAM
     Route: 065

REACTIONS (8)
  - Uveitis [Recovered/Resolved]
  - Erythema nodosum [Unknown]
  - Ankylosing spondylitis [Unknown]
  - Vasculitis necrotising [Recovered/Resolved]
  - Arthritis [Unknown]
  - Pustular psoriasis [Unknown]
  - Diarrhoea [Unknown]
  - Anaemia [Unknown]

NARRATIVE: CASE EVENT DATE: 20190901
